FAERS Safety Report 5671415-9 (Version None)
Quarter: 2008Q1

REPORT INFORMATION
  Report Type: 
  Country: None (occurrence: None)
  Receive Date: 20080313
  Receipt Date: 20080228
  Transmission Date: 20080703
  Serious: Yes (Hospitalization)
  Sender: FDA-Public Use
  Company Number: CN-1165424

PATIENT
  Age: 68 Year
  Sex: Female

DRUGS (4)
  1. AZOPT [Suspect]
     Dosage: 1 GTT TID, OPHTHALMIC
     Route: 047
  2. LUMIGAN [Concomitant]
  3. FLUMETHOLON (FLUOROMETHOLONE) [Concomitant]
  4. PRANOPULIN (PRANOPROFEN) [Concomitant]

REACTIONS (2)
  - ANAPHYLACTIC REACTION [None]
  - SKIN DISORDER [None]
